FAERS Safety Report 17905968 (Version 1)
Quarter: 2020Q2

REPORT INFORMATION
  Report Type: Spontaneous
  Country: US (occurrence: US)
  Receive Date: 20200616
  Receipt Date: 20200616
  Transmission Date: 20200714
  Serious: No
  Sender: FDA-Public Use
  Company Number: US-ROCHE-2304524

PATIENT
  Sex: Male

DRUGS (3)
  1. TRULICITY [Concomitant]
     Active Substance: DULAGLUTIDE
     Dosage: YES
     Route: 065
  2. INSULIN [Concomitant]
     Active Substance: INSULIN NOS
     Indication: DIABETES MELLITUS
     Dosage: YES
     Route: 065
  3. ACTEMRA [Suspect]
     Active Substance: TOCILIZUMAB
     Indication: TEMPORAL ARTERITIS
     Dosage: ON ACTEMRA SQ FOR ABOUT 5 WEEKS.
     Route: 058

REACTIONS (5)
  - Product dose omission [Unknown]
  - Product administration error [Unknown]
  - Needle issue [Unknown]
  - Exposure via skin contact [Unknown]
  - No adverse event [Unknown]
